FAERS Safety Report 17228996 (Version 1)
Quarter: 2020Q1

REPORT INFORMATION
  Report Type: Spontaneous
  Country: US (occurrence: US)
  Receive Date: 20200102
  Receipt Date: 20200102
  Transmission Date: 20200409
  Serious: Yes (Disabling)
  Sender: FDA-Public Use
  Company Number: None

PATIENT
  Age: 50 Year
  Sex: Female
  Weight: 94.5 kg

DRUGS (14)
  1. MESTINON [Concomitant]
     Active Substance: PYRIDOSTIGMINE BROMIDE
  2. IMMUNOGLOBULIN G [Concomitant]
     Active Substance: HUMAN IMMUNOGLOBULIN G
  3. FUROSEMIDE. [Concomitant]
     Active Substance: FUROSEMIDE
  4. MULTIVITAMIN (WITHOUT MAGNESIUM) [Concomitant]
  5. AMITRIPTYLINE [Concomitant]
     Active Substance: AMITRIPTYLINE
  6. MELOXICAM. [Concomitant]
     Active Substance: MELOXICAM
  7. RUZURGI [Suspect]
     Active Substance: AMIFAMPRIDINE
     Indication: MYASTHENIC SYNDROME
     Dosage: ?          QUANTITY:1.5 TABLET(S);?
     Route: 048
     Dates: start: 20191115, end: 20191211
  8. COQ10 [Concomitant]
     Active Substance: UBIDECARENONE
  9. ESTRADIOL. [Concomitant]
     Active Substance: ESTRADIOL
  10. LIOTHYROXINE SODIUM [Concomitant]
  11. VITAMIN D3 [Concomitant]
     Active Substance: CHOLECALCIFEROL
  12. BACLOFEN. [Concomitant]
     Active Substance: BACLOFEN
  13. CETIRIZINE [Concomitant]
     Active Substance: CETIRIZINE HYDROCHLORIDE
  14. FOLIC ACID. [Concomitant]
     Active Substance: FOLIC ACID

REACTIONS (6)
  - Paraesthesia oral [None]
  - Paraesthesia [None]
  - Fatigue [None]
  - Product packaging issue [None]
  - Asthenia [None]
  - Product measured potency issue [None]

NARRATIVE: CASE EVENT DATE: 20191118
